FAERS Safety Report 11367242 (Version 1)
Quarter: 2015Q3

REPORT INFORMATION
  Report Type: Spontaneous
  Country: US (occurrence: US)
  Receive Date: 20150811
  Receipt Date: 20150811
  Transmission Date: 20151125
  Serious: No
  Sender: FDA-Public Use
  Company Number: US-ELI_LILLY_AND_COMPANY-US201202000569

PATIENT
  Sex: Male

DRUGS (4)
  1. OXYCODONE [Concomitant]
     Active Substance: OXYCODONE
     Dosage: 15 MG, EVERY 4-8 HOURS
  2. AXIRON [Suspect]
     Active Substance: TESTOSTERONE
     Indication: BLOOD TESTOSTERONE DECREASED
     Dosage: 60 MG, UNK
     Dates: start: 201107
  3. AXIRON [Suspect]
     Active Substance: TESTOSTERONE
     Dosage: 60 MG ONE DAY, 30 MG THE NEXT DAY
  4. KADIAN [Concomitant]
     Active Substance: MORPHINE SULFATE
     Dosage: 30 MG, EVERY 12 HOURS

REACTIONS (3)
  - Drug dose omission [Unknown]
  - Red blood cell count increased [Unknown]
  - Wrong technique in product usage process [Unknown]
